FAERS Safety Report 4896195-6 (Version None)
Quarter: 2006Q1

REPORT INFORMATION
  Report Type: 
  Country: None (occurrence: None)
  Receive Date: 20060126
  Receipt Date: 20060110
  Transmission Date: 20060701
  Serious: Yes (Death)
  Sender: FDA-Public Use
  Company Number: 200601IM000089

PATIENT
  Sex: Female

DRUGS (3)
  1. INTERFERON GAMMA-1B [Suspect]
     Indication: OVARIAN CANCER
  2. CYCLOPHOSPHAMIDE [Suspect]
  3. PLATINUM [Suspect]

REACTIONS (3)
  - DISEASE PROGRESSION [None]
  - OVARIAN CANCER [None]
  - THERAPY NON-RESPONDER [None]
